FAERS Safety Report 13798636 (Version 2)
Quarter: 2017Q4

REPORT INFORMATION
  Report Type: Spontaneous
  Country: US (occurrence: US)
  Receive Date: 20170727
  Receipt Date: 20171006
  Transmission Date: 20180320
  Serious: No
  Sender: FDA-Public Use
  Company Number: US-JNJFOC-20170704242

PATIENT
  Sex: Female

DRUGS (3)
  1. LISINOPRIL. [Concomitant]
     Active Substance: LISINOPRIL
     Indication: CARDIAC ASSISTANCE DEVICE USER
     Route: 065
  2. ROGAINE [Suspect]
     Active Substance: MINOXIDIL
     Indication: ALOPECIA
     Dosage: 1-2 TIMES A DAY
     Route: 061
     Dates: end: 2017
  3. ROGAINE [Suspect]
     Active Substance: MINOXIDIL
     Route: 061

REACTIONS (3)
  - Expired product administered [Recovering/Resolving]
  - Hair growth abnormal [Recovering/Resolving]
  - Inappropriate schedule of drug administration [Recovering/Resolving]
